FAERS Safety Report 25312177 (Version 2)
Quarter: 2025Q2

REPORT INFORMATION
  Report Type: Spontaneous
  Country: US (occurrence: US)
  Receive Date: 20250510
  Receipt Date: 20250526
  Transmission Date: 20250717
  Serious: Yes (Other)
  Sender: NOVO NORDISK
  Company Number: US-NOVOPROD-1413811

PATIENT
  Age: 72 Year
  Sex: Female
  Weight: 91 kg

DRUGS (3)
  1. OZEMPIC [Suspect]
     Active Substance: SEMAGLUTIDE
     Indication: Weight control
     Dosage: 1 MG, QW
     Route: 058
     Dates: start: 202410
  2. OZEMPIC [Suspect]
     Active Substance: SEMAGLUTIDE
     Indication: Glucose tolerance impaired
  3. MIRALAX [Concomitant]
     Active Substance: POLYETHYLENE GLYCOL 3350
     Indication: Product used for unknown indication
     Dosage: 17 G, QD
     Route: 048

REACTIONS (18)
  - Diabetes mellitus [Not Recovered/Not Resolved]
  - Limb injury [Unknown]
  - Rotator cuff tear arthropathy [Unknown]
  - Arthritis [Unknown]
  - Dyspnoea [Unknown]
  - Hot flush [Unknown]
  - Feeding disorder [Unknown]
  - Presyncope [Unknown]
  - Fall [Unknown]
  - Decreased appetite [Unknown]
  - Nausea [Unknown]
  - Gastrooesophageal reflux disease [Unknown]
  - Condition aggravated [Unknown]
  - Dizziness [Not Recovered/Not Resolved]
  - Glycosylated haemoglobin increased [Unknown]
  - Constipation [Unknown]
  - Vomiting [Unknown]
  - Off label use [Not Recovered/Not Resolved]
